FAERS Safety Report 18668427 (Version 1)
Quarter: 2020Q4

REPORT INFORMATION
  Report Type: Spontaneous
  Country: US (occurrence: US)
  Receive Date: 20201217
  Receipt Date: 20201217
  Transmission Date: 20210114
  Serious: No
  Sender: FDA-Public Use
  Company Number: 1049092-2020-00183

PATIENT
  Age: 44 Year
  Sex: Female

DRUGS (1)
  1. ALOE VESTA SKIN CONDITIONER [Suspect]
     Active Substance: DIMETHICONE

REACTIONS (1)
  - Dermatitis contact [None]

NARRATIVE: CASE EVENT DATE: 20201109
